FAERS Safety Report 4714514-8 (Version None)
Quarter: 2005Q3

REPORT INFORMATION
  Report Type: 
  Country: None (occurrence: None)
  Receive Date: 20050705
  Receipt Date: 20050124
  Transmission Date: 20060218
  Serious: Yes (Disabling, Other)
  Sender: FDA-Public Use
  Company Number: 2005-0007954

PATIENT
  Age: 52 Year
  Sex: Male
  Weight: 75.2971 kg

DRUGS (10)
  1. VIREAD [Suspect]
     Indication: HIV INFECTION
     Dosage: 300 MG, 1 IN 1 D, ORAL
     Route: 048
     Dates: start: 20020201, end: 20041223
  2. VIDEX EC [Suspect]
     Indication: HIV INFECTION
     Dosage: 250 MG, 1 IN 1 D, ORAL
     Route: 048
     Dates: start: 20020801, end: 20041223
  3. KALETRA [Concomitant]
  4. EPIVIR [Concomitant]
  5. NASACORT AQ(TRIAMCINOOLONE ACETONIDE) [Concomitant]
  6. TERAZOSIN(TERAZOSIN) [Concomitant]
  7. BACLOFEN [Concomitant]
  8. FOLIC ACID [Concomitant]
  9. COUMADIN [Concomitant]
  10. ANDROGEL [Concomitant]

REACTIONS (1)
  - LACTIC ACIDOSIS [None]
